FAERS Safety Report 7504630-X (Version None)
Quarter: 2011Q2

REPORT INFORMATION
  Report Type: 
  Country: None (occurrence: None)
  Receive Date: 20110525
  Receipt Date: 20110324
  Transmission Date: 20111010
  Serious: Yes (Other)
  Sender: FDA-Public Use
  Company Number: US-AMGEN-USASP2011016015

PATIENT
  Sex: Male

DRUGS (4)
  1. CORTICOSTEROIDS [Concomitant]
  2. AZATHIOPRINE [Concomitant]
  3. NPLATE [Suspect]
     Indication: IDIOPATHIC THROMBOCYTOPENIC PURPURA
     Dosage: 0.68 A?G/KG, UNK
     Dates: start: 20081021, end: 20091022
  4. DANAZOL [Concomitant]

REACTIONS (1)
  - DRUG INEFFECTIVE [None]
